FAERS Safety Report 21319894 (Version 3)
Quarter: 2022Q4

REPORT INFORMATION
  Report Type: Spontaneous
  Country: US (occurrence: US)
  Receive Date: 20220911
  Receipt Date: 20221108
  Transmission Date: 20230113
  Serious: No
  Sender: FDA-Public Use
  Company Number: US-SA-SAC20220906000744

PATIENT
  Age: 69 Year
  Sex: Male

DRUGS (22)
  1. DUPIXENT [Suspect]
     Active Substance: DUPILUMAB
     Indication: Dermatitis atopic
     Dosage: 300 MG, QOW
     Route: 058
     Dates: start: 2019
  2. TART CHERRY [Concomitant]
     Dosage: 30-250-75
  3. MODERNA COVID-19 VACCINE [Concomitant]
     Active Substance: ELASOMERAN
     Dosage: (12Y UP)VAC(EUA)
  4. SILDENAFIL CITRATE [Concomitant]
     Active Substance: SILDENAFIL CITRATE
  5. FLUAD QUAD [Concomitant]
     Dosage: 2021-2022, 2022-2023
  6. CLOBETASOL PROPIONATE [Concomitant]
     Active Substance: CLOBETASOL PROPIONATE
  7. TRIAMCINOLONE ACETONIDE [Concomitant]
     Active Substance: TRIAMCINOLONE ACETONIDE
     Dosage: 20 MG
  8. ALPRAZOLAM [Concomitant]
     Active Substance: ALPRAZOLAM
  9. ATORVASTATIN CALCIUM [Concomitant]
     Active Substance: ATORVASTATIN CALCIUM
  10. LISINOPRIL [Concomitant]
     Active Substance: LISINOPRIL
  11. METHYLPREDNISOLONE [Concomitant]
     Active Substance: METHYLPREDNISOLONE
  12. CELEBREX [Concomitant]
     Active Substance: CELECOXIB
  13. SELENIUM [Concomitant]
     Active Substance: SELENIUM
  14. METAMUCIL THERAPY FOR REGULARITY [Concomitant]
     Active Substance: PSYLLIUM HUSK
  15. CLOBETASOL [Concomitant]
     Active Substance: CLOBETASOL
  16. LISINOPRIL [Concomitant]
     Active Substance: LISINOPRIL
  17. ATORVASTATIN CALCIUM [Concomitant]
     Active Substance: ATORVASTATIN CALCIUM
  18. ADVIL [Concomitant]
     Active Substance: IBUPROFEN
  19. COLCHICINE [Concomitant]
     Active Substance: COLCHICINE
  20. INDOMETHACIN [Concomitant]
     Active Substance: INDOMETHACIN
  21. METAMUCIL [Concomitant]
     Active Substance: PLANTAGO SEED
  22. ALEVE [Concomitant]
     Active Substance: NAPROXEN SODIUM

REACTIONS (19)
  - Joint swelling [Unknown]
  - Condition aggravated [Unknown]
  - Gout [Unknown]
  - COVID-19 [Unknown]
  - Hypoaesthesia [Unknown]
  - Peripheral swelling [Unknown]
  - Pain [Unknown]
  - Amnesia [Unknown]
  - Limb injury [Unknown]
  - Otitis externa [Unknown]
  - Gait disturbance [Unknown]
  - Spider vein [Unknown]
  - Loss of personal independence in daily activities [Unknown]
  - Hypoaesthesia [Unknown]
  - Paraesthesia [Unknown]
  - Joint range of motion decreased [Unknown]
  - Insomnia [Unknown]
  - Discomfort [Unknown]
  - Arthralgia [Unknown]

NARRATIVE: CASE EVENT DATE: 20220101
